FAERS Safety Report 6255063-8 (Version None)
Quarter: 2009Q3

REPORT INFORMATION
  Report Type: 
  Country: None (occurrence: None)
  Receive Date: 20090702
  Receipt Date: 20090623
  Transmission Date: 20100115
  Serious: Yes (Death)
  Sender: FDA-Public Use
  Company Number: US-GENENTECH-279885

PATIENT
  Sex: Male

DRUGS (1)
  1. NUTROPIN [Suspect]
     Indication: DRUG USE FOR UNKNOWN INDICATION

REACTIONS (1)
  - NON-HODGKIN'S LYMPHOMA [None]
